FAERS Safety Report 11922144 (Version 2)
Quarter: 2016Q1

REPORT INFORMATION
  Report Type: Spontaneous
  Country: None (occurrence: US)
  Receive Date: 20160115
  Receipt Date: 20160210
  Transmission Date: 20160526
  Serious: No
  Sender: FDA-Public Use
  Company Number: US-MATRIXX INITIATIVES, INC.-1046549

PATIENT
  Age: 30 Year
  Sex: Female
  Weight: 87.73 kg

DRUGS (3)
  1. ZICAM COLD REMEDY SWABS [Suspect]
     Active Substance: ZINC GLUCONATE
     Indication: NASOPHARYNGITIS
     Route: 045
     Dates: start: 20160111, end: 20160113
  2. WELLBUTRIN [Concomitant]
     Active Substance: BUPROPION HYDROCHLORIDE
  3. UNSPECIFIED BIRTH CONTROL PILLS [Concomitant]
     Active Substance: UNSPECIFIED INGREDIENT

REACTIONS (2)
  - Ageusia [Recovered/Resolved]
  - Anosmia [Recovered/Resolved]
